FAERS Safety Report 5069367-8 (Version None)
Quarter: 2006Q3

REPORT INFORMATION
  Report Type: 
  Country: None (occurrence: None)
  Receive Date: 20060714
  Receipt Date: 20060328
  Transmission Date: 20061208
  Serious: No
  Sender: FDA-Public Use
  Company Number: 2006SP001425

PATIENT
  Age: 35 Year
  Sex: Female
  Weight: 104.3273 kg

DRUGS (3)
  1. LUNESTA [Suspect]
     Indication: INSOMNIA
     Dosage: 2 MG;HS;ORAL
     Route: 048
     Dates: start: 20051009, end: 20051011
  2. WELLBUTRIN [Concomitant]
  3. LAMOTRIGINE [Concomitant]

REACTIONS (4)
  - FEELING JITTERY [None]
  - HEART RATE INCREASED [None]
  - INSOMNIA [None]
  - PSYCHOMOTOR HYPERACTIVITY [None]
